FAERS Safety Report 15647697 (Version 7)
Quarter: 2019Q2

REPORT INFORMATION
  Report Type: Report from Study
  Country: JP (occurrence: JP)
  Receive Date: 20181122
  Receipt Date: 20190522
  Transmission Date: 20190711
  Serious: Yes (Hospitalization, Disabling)
  Sender: FDA-Public Use
  Company Number: JP-PFIZER INC-2018478656

PATIENT
  Age: 70 Year
  Sex: Female

DRUGS (5)
  1. METHOTREXATE SODIUM. [Suspect]
     Active Substance: METHOTREXATE SODIUM
     Dosage: 16 MG, WEEKLY
     Dates: start: 20151106
  2. METHOTREXATE SODIUM. [Suspect]
     Active Substance: METHOTREXATE SODIUM
     Indication: RHEUMATOID ARTHRITIS
     Dosage: 12 MG, WEEKLY
     Dates: start: 20150814, end: 20151105
  3. PYRIDOXAL [Concomitant]
     Active Substance: PYRIDOXAL
     Dosage: UNK
     Dates: start: 20160701, end: 20170110
  4. XELJANZ [Suspect]
     Active Substance: TOFACITINIB CITRATE
     Indication: RHEUMATOID ARTHRITIS
     Dosage: 5 MG, 2X/DAY
     Route: 048
     Dates: start: 20150904, end: 20151203
  5. ISCOTIN [Concomitant]
     Active Substance: ISONIAZID
     Dosage: UNK
     Dates: start: 20160701, end: 20170110

REACTIONS (2)
  - Respiratory disorder [Unknown]
  - Asthma [Unknown]

NARRATIVE: CASE EVENT DATE: 20160920
